FAERS Safety Report 4569497-0 (Version None)
Quarter: 2005Q1

REPORT INFORMATION
  Report Type: 
  Country: None (occurrence: None)
  Receive Date: 20050201
  Receipt Date: 20050114
  Transmission Date: 20050727
  Serious: No
  Sender: FDA-Public Use
  Company Number: A01200500233

PATIENT
  Age: 36 Year
  Sex: Male

DRUGS (2)
  1. STILNOCT - (ZOLPIDEM TARTRATE) [Suspect]
     Indication: SLEEP DISORDER
     Dates: start: 20050107
  2. DAFALGAN CODEINE (PARACETAMOL, CODEINE PHOSPHATE0 [Concomitant]

REACTIONS (2)
  - ABNORMAL BEHAVIOUR [None]
  - AGGRESSION [None]
